FAERS Safety Report 5758650-6 (Version None)
Quarter: 2008Q2

REPORT INFORMATION
  Report Type: 
  Country: None (occurrence: None)
  Receive Date: 20080604
  Receipt Date: 20080509
  Transmission Date: 20081010
  Serious: Yes (Disabling, Other)
  Sender: FDA-Public Use
  Company Number: US-JNJFOC-20070401077

PATIENT
  Age: 41 Year
  Sex: Female
  Weight: 54.43 kg

DRUGS (2)
  1. LEVAQUIN [Suspect]
     Indication: SINUSITIS
     Route: 048
  2. CORTICOSTERIOD [Concomitant]
     Indication: SINUSITIS
     Route: 045

REACTIONS (5)
  - MUSCLE SPASMS [None]
  - MYALGIA [None]
  - NEUROLOGICAL SYMPTOM [None]
  - SENSORY DISTURBANCE [None]
  - TENDON PAIN [None]
